FAERS Safety Report 9354472 (Version 3)
Quarter: 2013Q3

REPORT INFORMATION
  Report Type: Spontaneous
  Country: TW (occurrence: TW)
  Receive Date: 20130618
  Receipt Date: 20130903
  Transmission Date: 20140515
  Serious: Yes (Hospitalization)
  Sender: FDA-Public Use
  Company Number: TW-ABBOTT-13P-153-1105619-00

PATIENT
  Age: 47 Year
  Sex: Female
  Weight: 48.1 kg

DRUGS (3)
  1. HUMIRA [Suspect]
     Indication: RHEUMATOID ARTHRITIS
     Route: 058
     Dates: start: 20090218
  2. HUMIRA [Suspect]
     Dates: start: 20130220, end: 20130530
  3. MTX [Concomitant]
     Indication: RHEUMATOID ARTHRITIS
     Dosage: 2PC/WEEK
     Route: 048
     Dates: start: 20121114, end: 20130530

REACTIONS (4)
  - Oedema [Recovered/Resolved]
  - Hepatitis acute [Unknown]
  - Decreased appetite [Unknown]
  - Fatigue [Unknown]
